FAERS Safety Report 12079821 (Version 1)
Quarter: 2016Q1

REPORT INFORMATION
  Report Type: Spontaneous
  Country: JP (occurrence: JP)
  Receive Date: 20160216
  Receipt Date: 20160216
  Transmission Date: 20160526
  Serious: Yes (Other)
  Sender: FDA-Public Use
  Company Number: JP-SA-2016SA027423

PATIENT
  Age: 39 Year
  Sex: Male

DRUGS (5)
  1. MITOMYCIN C [Concomitant]
     Active Substance: MITOMYCIN
     Dosage: 10 MG/BODY
  2. 5-FU [Concomitant]
     Active Substance: FLUOROURACIL
     Dosage: 1000 MG/BODY
  3. XELODA [Concomitant]
     Active Substance: CAPECITABINE
  4. ELPLAT [Suspect]
     Active Substance: OXALIPLATIN
     Indication: COLON CANCER
     Route: 033
  5. BETAMETHASONE SODIUM PHOSPHATE [Concomitant]
     Active Substance: BETAMETHASONE SODIUM PHOSPHATE

REACTIONS (1)
  - Encapsulating peritoneal sclerosis [Recovered/Resolved]
